FAERS Safety Report 9072882 (Version 1)
Quarter: 2013Q1

REPORT INFORMATION
  Report Type: Not Available
  Country: FR (occurrence: FR)
  Receive Date: 20130207
  Receipt Date: 20130207
  Transmission Date: 20140127
  Serious: Yes (Hospitalization, Other)
  Sender: FDA-Public Use
  Company Number: FR-ASTELLAS-2013US001288

PATIENT
  Age: 70 Year
  Sex: Female
  Weight: 66 kg

DRUGS (3)
  1. AMBISOME [Suspect]
     Indication: CRYPTOCOCCOSIS
     Dosage: 200 MG, UID/QD
     Route: 065
     Dates: start: 20121114, end: 20121119
  2. FUNGIZONE [Suspect]
     Indication: CRYPTOCOCCOSIS
     Dosage: 200 MG, UNKNOWN/D
     Route: 065
     Dates: start: 20121120, end: 20121120
  3. ANCOTIL [Concomitant]
     Indication: PRODUCT USED FOR UNKNOWN INDICATION
     Dosage: UNK
     Route: 065

REACTIONS (7)
  - Medication error [Unknown]
  - Erythema [Unknown]
  - Hypertension [Unknown]
  - Headache [Unknown]
  - Nausea [Unknown]
  - Renal failure [Recovered/Resolved with Sequelae]
  - Glomerular filtration rate decreased [Recovered/Resolved with Sequelae]
